FAERS Safety Report 9097195 (Version 1)
Quarter: 2013Q1

REPORT INFORMATION
  Report Type: Report from Study
  Country: US (occurrence: US)
  Receive Date: 20130212
  Receipt Date: 20130212
  Transmission Date: 20140127
  Serious: Yes (Death)
  Sender: FDA-Public Use
  Company Number: US-ACTELION-A-NJ2013-79210

PATIENT
  Age: 80 Year
  Sex: Male

DRUGS (4)
  1. VENTAVIS [Suspect]
     Indication: PULMONARY ARTERIAL HYPERTENSION
     Dosage: 10 MCG, 6 TIMES DAILY
     Route: 055
     Dates: start: 20110516
  2. COUMADIN [Concomitant]
     Dosage: 4 MG, UNK
  3. CRESTOR [Concomitant]
     Dosage: 5 MG, OD
  4. LASIX [Concomitant]
     Dosage: 40 MG, BID

REACTIONS (1)
  - Death [Fatal]
